FAERS Safety Report 4844902-0 (Version None)
Quarter: 2005Q4

REPORT INFORMATION
  Report Type: 
  Country: None (occurrence: None)
  Receive Date: 20051128
  Receipt Date: 20051118
  Transmission Date: 20060501
  Serious: Yes (Other)
  Sender: FDA-Public Use
  Company Number: 2005158717

PATIENT
  Age: 69 Year
  Sex: 0

DRUGS (2)
  1. NORVASC [Suspect]
     Indication: ILL-DEFINED DISORDER
     Dosage: 2.5 MG (ORAL)
     Route: 048
     Dates: start: 20051005
  2. ALINAMIN F (FURSULTIAMINE) [Concomitant]

REACTIONS (1)
  - EYE HAEMORRHAGE [None]
